FAERS Safety Report 8475071-6 (Version None)
Quarter: 2012Q2

REPORT INFORMATION
  Report Type: 
  Country: None (occurrence: None)
  Receive Date: 20120628
  Receipt Date: 20120626
  Transmission Date: 20120825
  Serious: Yes (Hospitalization, Other)
  Sender: FDA-Public Use
  Company Number: US-JNJFOC-20070706645

PATIENT
  Sex: Female
  Weight: 68 kg

DRUGS (47)
  1. GOLIMUMAB [Suspect]
     Dosage: WEEK 24
     Route: 058
     Dates: start: 20070501
  2. PLACEBO [Suspect]
     Dosage: WEEK 29
     Route: 048
     Dates: start: 20070531
  3. PLACEBO [Suspect]
     Dosage: WEEK 24
     Route: 048
     Dates: start: 20070503
  4. PLACEBO [Suspect]
     Dosage: WEEK 0
     Route: 048
     Dates: start: 20061109
  5. PLACEBO [Suspect]
     Dosage: WEEK 10
     Route: 048
     Dates: start: 20070118
  6. PLACEBO [Suspect]
     Dosage: WEEK 16
     Route: 048
     Dates: start: 20070228
  7. GOLIMUMAB [Suspect]
     Dosage: WEEK 0
     Route: 058
     Dates: start: 20061108
  8. PLACEBO [Suspect]
     Indication: RHEUMATOID ARTHRITIS
     Dosage: WEEK 11
     Route: 048
     Dates: start: 20070125
  9. PLACEBO [Suspect]
     Dosage: WEEK 33
     Route: 048
     Dates: start: 20070621
  10. PLACEBO [Suspect]
     Dosage: WEEK 9
     Route: 048
     Dates: start: 20070111
  11. PLACEBO [Suspect]
     Dosage: WEEK 14
     Route: 048
     Dates: start: 20070215
  12. PLACEBO [Suspect]
     Dosage: WEEK 31
     Route: 048
     Dates: start: 20070614
  13. PLACEBO [Suspect]
     Dosage: WEEK 4
     Route: 048
     Dates: start: 20061207
  14. PLACEBO [Suspect]
     Dosage: WEEK 17
     Route: 048
     Dates: start: 20070307
  15. GOLIMUMAB [Suspect]
     Dosage: WEEK 8
     Route: 058
     Dates: start: 20070104
  16. GOLIMUMAB [Suspect]
     Dosage: WEEK 20
     Route: 058
     Dates: start: 20070405
  17. GOLIMUMAB [Suspect]
     Dosage: WEEK 28
     Route: 058
     Dates: start: 20070529
  18. PLACEBO [Suspect]
     Dosage: WEEK 28
     Route: 048
     Dates: start: 20070524
  19. PLACEBO [Suspect]
     Dosage: WEEK 26
     Route: 048
     Dates: start: 20070510
  20. PLACEBO [Suspect]
     Dosage: WEEK 1
     Route: 048
     Dates: start: 20061116
  21. PLACEBO [Suspect]
     Dosage: WEEK 12
     Route: 048
     Dates: start: 20070201
  22. PLACEBO [Suspect]
     Dosage: WEEK 22
     Route: 048
     Dates: start: 20070405
  23. GOLIMUMAB [Suspect]
     Indication: RHEUMATOID ARTHRITIS
     Dosage: WEEK 16
     Route: 058
     Dates: start: 20070301
  24. PLACEBO [Suspect]
     Dosage: WEEK 3
     Route: 048
     Dates: start: 20061130
  25. PLACEBO [Suspect]
     Dosage: WEEK 7
     Route: 048
     Dates: start: 20061228
  26. PLACEBO [Suspect]
     Dosage: WEEK 19
     Route: 048
     Dates: start: 20070321
  27. ACETAMINOPHEN [Concomitant]
     Dates: start: 20061207
  28. PROZAC [Concomitant]
     Indication: DEPRESSION
     Route: 048
     Dates: start: 20061206
  29. FOLIC ACID [Concomitant]
     Route: 048
     Dates: start: 20061108
  30. GOLIMUMAB [Suspect]
     Dosage: WEEK 4
     Route: 058
     Dates: start: 20061206
  31. GOLIMUMAB [Suspect]
     Dosage: WEEK 12
     Route: 058
     Dates: start: 20070201
  32. PLACEBO [Suspect]
     Dosage: WEEK 2
     Route: 048
     Dates: start: 20061123
  33. PLACEBO [Suspect]
     Dosage: WEEK 18
     Route: 048
     Dates: start: 20070314
  34. BUSPAR [Concomitant]
     Indication: ANXIETY
     Route: 048
     Dates: start: 20070301
  35. PLACEBO [Suspect]
     Dosage: WEEK 32
     Route: 048
     Dates: start: 20070621
  36. PLACEBO [Suspect]
     Dosage: WEEK 30
     Route: 048
     Dates: start: 20070607
  37. PLACEBO [Suspect]
     Dosage: WEEK 27
     Route: 048
     Dates: start: 20070517
  38. PLACEBO [Suspect]
     Dosage: WEEK 5
     Route: 048
     Dates: start: 20061214
  39. PLACEBO [Suspect]
     Dosage: WEEK 13
     Route: 048
     Dates: start: 20070208
  40. PLACEBO [Suspect]
     Dosage: WEEK 15
     Route: 048
     Dates: start: 20070222
  41. GOLIMUMAB [Suspect]
     Dosage: WEEK 32
     Route: 058
     Dates: start: 20070703
  42. PLACEBO [Suspect]
     Dosage: WEEK 6
     Route: 048
     Dates: start: 20061221
  43. PLACEBO [Suspect]
     Dosage: WEEK 8
     Route: 048
     Dates: start: 20070104
  44. PLACEBO [Suspect]
     Dosage: WEEK 22
     Route: 048
     Dates: start: 20070412
  45. PLACEBO [Suspect]
     Dosage: WEEK 23
     Route: 048
     Dates: start: 20070419
  46. PLACEBO [Suspect]
     Dosage: WEEK 24
     Route: 048
     Dates: start: 20070426
  47. CORTISPORIN [Concomitant]
     Route: 001
     Dates: start: 20070529

REACTIONS (3)
  - HAEMORRHAGE [None]
  - ABORTION SPONTANEOUS [None]
  - MATERNAL EXPOSURE DURING PREGNANCY [None]
